FAERS Safety Report 13057449 (Version 1)
Quarter: 2016Q4

REPORT INFORMATION
  Report Type: Report from Study
  Country: US (occurrence: US)
  Receive Date: 20161223
  Receipt Date: 20161223
  Transmission Date: 20170207
  Serious: Yes (Death)
  Sender: FDA-Public Use
  Company Number: US-ASTRAZENECA-2016SF35250

PATIENT
  Sex: Male
  Weight: 79.4 kg

DRUGS (5)
  1. SYMBICORT [Suspect]
     Active Substance: BUDESONIDE\FORMOTEROL FUMARATE DIHYDRATE
     Dosage: ONCE DAILY
     Route: 055
  2. DALIRESP [Suspect]
     Active Substance: ROFLUMILAST
     Indication: CHRONIC OBSTRUCTIVE PULMONARY DISEASE
     Route: 048
     Dates: start: 2006
  3. MORPHINE [Concomitant]
     Active Substance: MORPHINE
  4. ALBUTEROL. [Concomitant]
     Active Substance: ALBUTEROL
     Dosage: NEBULIZER
  5. LORAZEPAM. [Concomitant]
     Active Substance: LORAZEPAM

REACTIONS (3)
  - Off label use [Unknown]
  - Drug dose omission [Not Recovered/Not Resolved]
  - Death [Fatal]
